FAERS Safety Report 6399898-X (Version None)
Quarter: 2009Q4

REPORT INFORMATION
  Report Type: 
  Country: None (occurrence: None)
  Receive Date: 20091014
  Receipt Date: 20091007
  Transmission Date: 20100525
  Serious: Yes (Life-Threatening, Other)
  Sender: FDA-Public Use
  Company Number: JP-GENENTECH-290451

PATIENT
  Sex: Female

DRUGS (6)
  1. RITUXAN [Suspect]
     Indication: DIFFUSE LARGE B-CELL LYMPHOMA
     Dosage: 500 MG, UNK
     Route: 042
     Dates: start: 20071126
  2. THERARUBICIN [Concomitant]
     Indication: DIFFUSE LARGE B-CELL LYMPHOMA
     Dosage: 43 MG, UNK
     Route: 042
     Dates: start: 20071105, end: 20080313
  3. ENDOXAN [Concomitant]
     Indication: DIFFUSE LARGE B-CELL LYMPHOMA
     Dosage: 620 MG, UNK
     Route: 042
     Dates: start: 20071105, end: 20080313
  4. ONCOVIN [Concomitant]
     Indication: DIFFUSE LARGE B-CELL LYMPHOMA
     Dosage: 1.2 MG, UNK
     Route: 042
     Dates: start: 20071105, end: 20080313
  5. PREDONINE [Concomitant]
     Indication: DIFFUSE LARGE B-CELL LYMPHOMA
     Dosage: 40 MG, UNK
     Route: 048
     Dates: start: 20071105, end: 20080317
  6. SOLU-CORTEF [Concomitant]
     Indication: PREMEDICATION
     Dosage: 200 MG, UNK
     Route: 042
     Dates: start: 20071126, end: 20080312

REACTIONS (2)
  - PERITONITIS [None]
  - SMALL INTESTINAL PERFORATION [None]
